FAERS Safety Report 9271672 (Version 1)
Quarter: 2013Q2

REPORT INFORMATION
  Report Type: Spontaneous
  Country: US (occurrence: US)
  Receive Date: 20130506
  Receipt Date: 20130506
  Transmission Date: 20140414
  Serious: No
  Sender: FDA-Public Use
  Company Number: US-COVIDIEN/TYCO HEALTHCARE/MALLINCKRODT-T201203807

PATIENT
  Age: 56 Year
  Sex: Female

DRUGS (4)
  1. HYDROCODONE/ACETAMINOPHEN [Suspect]
     Indication: BACK PAIN
     Dosage: 5/500 MG TABLET,  AS NECESSARY
     Dates: start: 20120910, end: 20120914
  2. PREDNISONE [Concomitant]
     Dosage: 5 MG, UNK
  3. MELOXICAM [Concomitant]
     Dosage: UNK
  4. REMICADE [Concomitant]
     Dosage: UNK

REACTIONS (2)
  - Drug screen negative [Unknown]
  - Drug ineffective [Unknown]
